FAERS Safety Report 19101573 (Version 1)
Quarter: 2021Q2

REPORT INFORMATION
  Report Type: Spontaneous
  Country: US (occurrence: US)
  Receive Date: 20210407
  Receipt Date: 20210407
  Transmission Date: 20210717
  Serious: Yes (Hospitalization)
  Sender: FDA-Public Use
  Company Number: None

PATIENT
  Age: 69 Year
  Sex: Male
  Weight: 101 kg

DRUGS (2)
  1. DAUNORUBICIN [Suspect]
     Active Substance: DAUNORUBICIN
     Dates: end: 20210131
  2. CYTARABINE. [Suspect]
     Active Substance: CYTARABINE
     Dates: end: 20210204

REACTIONS (3)
  - Cholelithiasis [None]
  - Hypophagia [None]
  - Hyperbilirubinaemia [None]

NARRATIVE: CASE EVENT DATE: 20210209
